FAERS Safety Report 7564669-5 (Version None)
Quarter: 2011Q2

REPORT INFORMATION
  Report Type: 
  Country: None (occurrence: None)
  Receive Date: 20110622
  Receipt Date: 20101108
  Transmission Date: 20111010
  Serious: Yes (Other)
  Sender: FDA-Public Use
  Company Number: US-MYLANLABS-2010S1014754

PATIENT
  Age: 28 Year
  Sex: Male

DRUGS (3)
  1. CLOZAPINE [Suspect]
     Indication: BIPOLAR DISORDER
     Dates: start: 20100730
  2. DEPAKOTE [Concomitant]
  3. CLOZAPINE [Suspect]
     Route: 048
     Dates: end: 20100812

REACTIONS (1)
  - GRANULOCYTOPENIA [None]
